FAERS Safety Report 9347939 (Version 1)
Quarter: 2013Q2

REPORT INFORMATION
  Report Type: Spontaneous
  Country: US (occurrence: None)
  Receive Date: 20130612
  Receipt Date: 20130612
  Transmission Date: 20140414
  Serious: Yes (Other)
  Sender: FDA-Public Use
  Company Number: None

PATIENT
  Age: 57 Year
  Sex: Male
  Weight: 111.13 kg

DRUGS (3)
  1. ENDOCET [Suspect]
     Indication: INTERVERTEBRAL DISC OPERATION
     Route: 048
     Dates: start: 20130410, end: 20130609
  2. ENDOCET [Suspect]
     Indication: INTERVERTEBRAL DISC DEGENERATION
     Route: 048
     Dates: start: 20130410, end: 20130609
  3. ENDOCET [Suspect]
     Indication: PAIN
     Route: 048
     Dates: start: 20130410, end: 20130609

REACTIONS (8)
  - Nausea [None]
  - Pyrexia [None]
  - Hot flush [None]
  - Night sweats [None]
  - Drug ineffective [None]
  - Mood swings [None]
  - Hypersomnia [None]
  - Product commingling [None]
